FAERS Safety Report 9295592 (Version 1)
Quarter: 2013Q2

REPORT INFORMATION
  Report Type: Spontaneous
  Country: US (occurrence: None)
  Receive Date: 20130514
  Receipt Date: 20130514
  Transmission Date: 20140414
  Serious: Yes (Life-Threatening)
  Sender: FDA-Public Use
  Company Number: FK201301256

PATIENT
  Age: 35 Year
  Sex: Male

DRUGS (3)
  1. PROPOFOL [Suspect]
     Indication: CONVULSION
     Dosage: 150 UG/KG/MIN, INTRAVENOUS (NOT OTHERWISE SPECIFIED)
     Route: 042
  2. MIDAZOLAM (MIDAZOLAM (MIDAZOLAM) [Concomitant]
  3. LORAZEPAM (LORAZEPAM) (LORAZEPAM) [Concomitant]

REACTIONS (10)
  - Blood lactic acid increased [None]
  - Electrocardiogram ST segment elevation [None]
  - Electrocardiogram QT prolonged [None]
  - Atrioventricular block first degree [None]
  - Blood triglycerides increased [None]
  - Alanine aminotransferase increased [None]
  - Aspartate aminotransferase increased [None]
  - Renal failure acute [None]
  - Haemodialysis [None]
  - Blood pressure abnormal [None]
